FAERS Safety Report 8509039-8 (Version None)
Quarter: 2012Q3

REPORT INFORMATION
  Report Type: 
  Country: None (occurrence: None)
  Receive Date: 20120713
  Receipt Date: 20120711
  Transmission Date: 20120928
  Serious: No
  Sender: FDA-Public Use
  Company Number: US-TEVA-348185USA

PATIENT
  Sex: Female
  Weight: 74.91 kg

DRUGS (3)
  1. PLAN B ONE-STEP [Suspect]
     Indication: POST COITAL CONTRACEPTION
     Dosage: 1.5 MILLIGRAM;
     Route: 048
     Dates: start: 20120630, end: 20120630
  2. LO-ESTROGEN [Concomitant]
     Indication: CONTRACEPTION
  3. THENCERINE [Concomitant]
     Indication: VULVOVAGINAL DRYNESS

REACTIONS (1)
  - MENSTRUATION IRREGULAR [None]
